FAERS Safety Report 6388179-6 (Version None)
Quarter: 2009Q4

REPORT INFORMATION
  Report Type: 
  Country: None (occurrence: None)
  Receive Date: 20091005
  Receipt Date: 20090928
  Transmission Date: 20100525
  Serious: Yes (Other)
  Sender: FDA-Public Use
  Company Number: US-BAYER-200934492NA

PATIENT
  Age: 31 Year
  Sex: Female
  Weight: 62 kg

DRUGS (2)
  1. MIRENA [Suspect]
     Indication: DRUG USE FOR UNKNOWN INDICATION
     Dosage: AS USED: 20 ?G
     Route: 015
     Dates: start: 20080430, end: 20080630
  2. MIRENA [Suspect]
     Dosage: AS USED: 20 ?G
     Route: 015
     Dates: start: 20090730

REACTIONS (2)
  - PENILE PAIN [None]
  - UTERINE RUPTURE [None]
